FAERS Safety Report 23332135 (Version 2)
Quarter: 2024Q1

REPORT INFORMATION
  Report Type: Report from Study
  Country: US (occurrence: US)
  Receive Date: 20231222
  Receipt Date: 20240113
  Transmission Date: 20240409
  Serious: Yes (Hospitalization, Other)
  Sender: FDA-Public Use
  Company Number: US-UCBSA-2023040792

PATIENT
  Sex: Female

DRUGS (2)
  1. CERTOLIZUMAB PEGOL [Suspect]
     Active Substance: CERTOLIZUMAB PEGOL
     Indication: Psoriasis
     Dosage: 400 MILLIGRAM (2 INJECTIONS X200 MG/ML), EV 2 WEEKS(QOW)
     Route: 058
     Dates: start: 20230629, end: 20230801
  2. CERTOLIZUMAB PEGOL [Suspect]
     Active Substance: CERTOLIZUMAB PEGOL
     Dosage: 2 INJECTIONS (400MG) EVERY 2 WEEKS, LAST DOSE ON 22-DEC-2023
     Route: 058
     Dates: start: 20231020

REACTIONS (9)
  - Psoriasis [Not Recovered/Not Resolved]
  - Spinal fusion surgery [Recovering/Resolving]
  - Hypoaesthesia [Recovering/Resolving]
  - Psoriatic arthropathy [Recovered/Resolved]
  - Drug ineffective [Unknown]
  - COVID-19 immunisation [Unknown]
  - Influenza immunisation [Unknown]
  - Intentional dose omission [Unknown]
  - Product use issue [Unknown]

NARRATIVE: CASE EVENT DATE: 20230101
